FAERS Safety Report 21307590 (Version 2)
Quarter: 2022Q3

REPORT INFORMATION
  Report Type: Spontaneous
  Country: FR (occurrence: FR)
  Receive Date: 20220908
  Receipt Date: 20220909
  Transmission Date: 20221027
  Serious: Yes (Other)
  Sender: FDA-Public Use
  Company Number: FR-NOVARTISPH-NVSC2022FR201720

PATIENT
  Age: 58 Year
  Sex: Female

DRUGS (9)
  1. CEFUROXIME [Suspect]
     Active Substance: CEFUROXIME
     Indication: Skin test
     Dosage: 2 MG/ML (2 MG/ML DURING SKIN TEST)
     Route: 065
  2. AMOXICILLIN TRIHYDRATE [Suspect]
     Active Substance: AMOXICILLIN
     Indication: Skin test
     Dosage: 20 MG/ML (20MG/ML DURING SKIN TEST)
     Route: 065
  3. CEFTRIAXONE [Suspect]
     Active Substance: CEFTRIAXONE
     Indication: Skin test
     Dosage: 2 MG/ML (2 MG/ML DURING SKIN TEST)
     Route: 065
  4. AMPICILLIN [Suspect]
     Active Substance: AMPICILLIN
     Indication: Skin test
     Dosage: 20 MILLIGRAM PER MILLILITRE ( (20MG/ML DURING SKIN TEST)
     Route: 065
  5. PENICILLOYL-POLYLYSINE [Suspect]
     Active Substance: PENICILLOYL-POLYLYSINE
     Indication: Skin test
     Dosage: 20 MG/ML (20MG/ML DURING SKIN TEST)
     Route: 065
  6. CEFOTAXIME [Suspect]
     Active Substance: CEFOTAXIME SODIUM
     Indication: Product used for unknown indication
     Dosage: UNK
     Route: 065
  7. PENICILLIN G [Suspect]
     Active Substance: PENICILLIN G
     Indication: Skin test
     Dosage: 10000 UI/ML DURING SKIN TEST
     Route: 065
  8. CEPHRADINE [Suspect]
     Active Substance: CEPHRADINE
     Indication: Skin test
     Dosage: 2 MG/ML (2 MG/ML DURING SKIN TEST)
     Route: 065
  9. CEPHALOTHIN [Suspect]
     Active Substance: CEPHALOTHIN
     Indication: Skin test
     Dosage: 2 MG/ML (2 MG/ML DURING SKIN TEST)
     Route: 065

REACTIONS (4)
  - Bronchospasm [Unknown]
  - Hypotension [Unknown]
  - Anaphylactic shock [Unknown]
  - Angioedema [Unknown]
